FAERS Safety Report 25504982 (Version 3)
Quarter: 2025Q3

REPORT INFORMATION
  Report Type: Spontaneous
  Country: US (occurrence: US)
  Receive Date: 20250702
  Receipt Date: 20250818
  Transmission Date: 20251021
  Serious: Yes (Death)
  Sender: SAREPTA THERAPEUTICS
  Company Number: US-SAREPTA THERAPEUTICS INC.-SRP2025-006094

PATIENT
  Sex: Male
  Weight: 53.5 kg

DRUGS (1)
  1. EXONDYS 51 [Suspect]
     Active Substance: ETEPLIRSEN
     Indication: Product used for unknown indication
     Route: 042
     Dates: start: 2016

REACTIONS (11)
  - Cardiac arrest [Fatal]
  - Disease progression [Fatal]
  - Abdominal discomfort [Unknown]
  - Cold sweat [Unknown]
  - Pallor [Unknown]
  - Blood pressure decreased [Recovered/Resolved]
  - Heart rate irregular [Unknown]
  - Decreased appetite [Unknown]
  - Hypophagia [Unknown]
  - Cyanosis [Unknown]
  - Dysphagia [Unknown]

NARRATIVE: CASE EVENT DATE: 20250101
